FAERS Safety Report 8099632-1 (Version None)
Quarter: 2012Q1

REPORT INFORMATION
  Report Type: 
  Country: None (occurrence: None)
  Receive Date: 20120131
  Receipt Date: 20120120
  Transmission Date: 20120608
  Serious: Yes (Hospitalization, Other)
  Sender: FDA-Public Use
  Company Number: ES-JNJFOC-20110708566

PATIENT
  Age: 35 Year
  Sex: Male
  Weight: 59.7 kg

DRUGS (25)
  1. REMICADE [Suspect]
     Indication: CROHN'S DISEASE
     Route: 042
     Dates: start: 20110309
  2. REMICADE [Suspect]
     Route: 042
     Dates: start: 20100419
  3. BUTYLSCOPOLAMINE [Concomitant]
     Route: 048
  4. REMICADE [Suspect]
     Route: 042
     Dates: start: 20101201
  5. REMICADE [Suspect]
     Route: 042
     Dates: start: 20100531
  6. REMICADE [Suspect]
     Route: 042
     Dates: start: 20110112
  7. REMICADE [Suspect]
     Route: 042
     Dates: start: 20101103
  8. REMICADE [Suspect]
     Route: 042
     Dates: start: 20110112
  9. REMICADE [Suspect]
     Indication: COLITIS ULCERATIVE
     Route: 042
     Dates: start: 20110530
  10. REMICADE [Suspect]
     Route: 042
     Dates: start: 20101201
  11. REMICADE [Suspect]
     Route: 042
     Dates: start: 20101103
  12. REMICADE [Suspect]
     Route: 042
     Dates: start: 20100503
  13. FOLIC ACID [Concomitant]
     Route: 048
  14. LORAZEPAM [Concomitant]
     Route: 048
  15. REMICADE [Suspect]
     Route: 042
     Dates: start: 20110530
  16. REMICADE [Suspect]
     Route: 042
     Dates: start: 20100419
  17. REMICADE [Suspect]
     Route: 042
     Dates: start: 20100503
  18. REMICADE [Suspect]
     Route: 042
     Dates: start: 20110309
  19. AZATHIOPRINE [Concomitant]
     Indication: CROHN'S DISEASE
     Route: 048
  20. REMICADE [Suspect]
     Route: 042
     Dates: start: 20110418
  21. REMICADE [Suspect]
     Route: 042
     Dates: start: 20100531
  22. PANTOPRAZOLE [Concomitant]
     Indication: GASTROINTESTINAL DISORDER THERAPY
     Route: 048
  23. REMICADE [Suspect]
     Route: 042
     Dates: start: 20101020
  24. REMICADE [Suspect]
     Route: 042
     Dates: start: 20110418
  25. REMICADE [Suspect]
     Route: 042
     Dates: start: 20101020

REACTIONS (5)
  - COLECTOMY TOTAL [None]
  - VENOUS THROMBOSIS [None]
  - TUBERCULOSIS [None]
  - COLITIS ULCERATIVE [None]
  - DEEP VEIN THROMBOSIS [None]
